FAERS Safety Report 5519893-X (Version None)
Quarter: 2007Q4

REPORT INFORMATION
  Report Type: 
  Country: None (occurrence: None)
  Receive Date: 20071116
  Receipt Date: 20071022
  Transmission Date: 20080405
  Serious: No
  Sender: FDA-Public Use
  Company Number: A0687544A

PATIENT
  Age: 86 Year
  Sex: Male

DRUGS (4)
  1. COREG CR [Suspect]
     Dosage: 40MG PER DAY
     Route: 048
     Dates: start: 20071002
  2. DIGITEK [Concomitant]
  3. LIPITOR [Concomitant]
  4. COUMADIN [Concomitant]

REACTIONS (1)
  - SKIN DISCOLOURATION [None]
